FAERS Safety Report 16644546 (Version 2)
Quarter: 2019Q3

REPORT INFORMATION
  Report Type: Spontaneous
  Country: US (occurrence: US)
  Receive Date: 20190729
  Receipt Date: 20190906
  Transmission Date: 20191004
  Serious: Yes (Other)
  Sender: FDA-Public Use
  Company Number: US-ENDO PHARMACEUTICALS INC-2019-106567

PATIENT
  Age: 43 Year
  Sex: Female

DRUGS (3)
  1. METHOTREXATE SODIUM. [Concomitant]
     Active Substance: METHOTREXATE SODIUM
     Dosage: ONCE A WEEK
     Route: 065
     Dates: start: 2008
  2. PREDNISONE. [Suspect]
     Active Substance: PREDNISONE
     Indication: PRODUCT USED FOR UNKNOWN INDICATION
     Dosage: 10 MG, UNKNOWN
     Route: 065
  3. METHOTREXATE SODIUM. [Concomitant]
     Active Substance: METHOTREXATE SODIUM
     Indication: RHEUMATOID ARTHRITIS
     Dosage: 1 TABLET , WEEKLY
     Route: 065
     Dates: start: 199205, end: 200306

REACTIONS (7)
  - Peripheral venous disease [Unknown]
  - Pain [Unknown]
  - Osteopenia [Unknown]
  - Non-alcoholic steatohepatitis [Unknown]
  - Weight increased [Unknown]
  - Diabetes mellitus [Unknown]
  - Sleep apnoea syndrome [Unknown]

NARRATIVE: CASE EVENT DATE: 199708
